FAERS Safety Report 25623301 (Version 4)
Quarter: 2025Q3

REPORT INFORMATION
  Report Type: Spontaneous
  Country: US (occurrence: US)
  Receive Date: 20250730
  Receipt Date: 20250902
  Transmission Date: 20251021
  Serious: No
  Sender: PFIZER
  Company Number: US-PFIZER INC-202500152475

PATIENT
  Age: 8 Year
  Sex: Male
  Weight: 22.68 kg

DRUGS (1)
  1. GENOTROPIN [Suspect]
     Active Substance: SOMATROPIN

REACTIONS (3)
  - Incorrect dose administered by device [Unknown]
  - Device dispensing error [Unknown]
  - Device defective [Unknown]
